FAERS Safety Report 16068711 (Version 1)
Quarter: 2019Q1

REPORT INFORMATION
  Report Type: Spontaneous
  Country: US (occurrence: US)
  Receive Date: 20190313
  Receipt Date: 20190313
  Transmission Date: 20190418
  Serious: No
  Sender: FDA-Public Use
  Company Number: US-TEVA-2019-US-1016090

PATIENT
  Sex: Female

DRUGS (1)
  1. NYSTATIN ORAL TABLETS [Suspect]
     Active Substance: NYSTATIN
     Indication: CANDIDA INFECTION
     Dosage: 500000 UNITS, PAST FOUR WEEKS SHE WAS TAKING ONE TABLET TWICE A DAY AND ON 12-FEB-2019 SHE BEGAN TAK
     Route: 048
     Dates: start: 201806, end: 20190215

REACTIONS (7)
  - Sinus pain [Unknown]
  - Pain in jaw [Unknown]
  - Sinus disorder [Unknown]
  - Rash [Unknown]
  - Toothache [Unknown]
  - Neuralgia [Unknown]
  - Facial pain [Unknown]

NARRATIVE: CASE EVENT DATE: 20190208
